FAERS Safety Report 10176817 (Version 1)
Quarter: 2014Q2

REPORT INFORMATION
  Report Type: Spontaneous
  Country: US (occurrence: US)
  Receive Date: 20140516
  Receipt Date: 20140516
  Transmission Date: 20141212
  Serious: Yes (Other)
  Sender: FDA-Public Use
  Company Number: US-BAYER-2014-069724

PATIENT
  Age: 89 Year
  Sex: Male
  Weight: 83.9 kg

DRUGS (3)
  1. BAYER ASPIRIN REGIMEN ADULT LOW STRENGTH [Suspect]
     Dosage: 1 DF, QD
     Route: 048
     Dates: start: 1984, end: 2011
  2. CALAN [VERAPAMIL HYDROCHLORIDE] [Concomitant]
  3. VITAMIN D [Concomitant]

REACTIONS (4)
  - Eye haemorrhage [Recovered/Resolved]
  - Macular degeneration [Not Recovered/Not Resolved]
  - Vision blurred [Not Recovered/Not Resolved]
  - Off label use [None]
